FAERS Safety Report 6477697-8 (Version None)
Quarter: 2009Q4

REPORT INFORMATION
  Report Type: 
  Country: None (occurrence: None)
  Receive Date: 20091207
  Receipt Date: 20091123
  Transmission Date: 20100525
  Serious: Yes (Hospitalization, Other)
  Sender: FDA-Public Use
  Company Number: US-PFIZER INC-2009302054

PATIENT
  Age: 40 Year

DRUGS (3)
  1. CHANTIX [Suspect]
     Dosage: UNK
     Dates: start: 20070701
  2. PREDNISONE [Suspect]
     Indication: NEPHRITIS
     Dosage: UNK
     Dates: start: 20070901, end: 20080101
  3. CYTOXAN [Suspect]
     Indication: NEPHRITIS

REACTIONS (8)
  - BLOOD CHOLESTEROL INCREASED [None]
  - FRACTURE [None]
  - GASTRIC DISORDER [None]
  - HEPATIC ENZYME ABNORMAL [None]
  - HYPERTENSION [None]
  - JOINT DESTRUCTION [None]
  - NEPHRITIS [None]
  - THYROID DISORDER [None]
